FAERS Safety Report 16363771 (Version 3)
Quarter: 2019Q2

REPORT INFORMATION
  Report Type: Report from Study
  Country: CO (occurrence: CO)
  Receive Date: 20190528
  Receipt Date: 20190615
  Transmission Date: 20190711
  Serious: Yes (Death, Life-Threatening, Hospitalization, Disabling, Other)
  Sender: FDA-Public Use
  Company Number: PHHY2019CO047542

PATIENT
  Age: 60 Year
  Sex: Male

DRUGS (2)
  1. VOTRIENT [Suspect]
     Active Substance: PAZOPANIB HYDROCHLORIDE
     Indication: SOFT TISSUE SARCOMA
     Dosage: 800 MG, QD
     Route: 048
     Dates: start: 20190124, end: 20190516
  2. ZIFLUVIS [Concomitant]
     Indication: COUGH
     Dosage: 150 MG, TID
     Route: 065

REACTIONS (13)
  - Aggression [Unknown]
  - Paraplegia [Unknown]
  - Dyschezia [Unknown]
  - Fluid retention [Unknown]
  - Anger [Unknown]
  - Swelling face [Unknown]
  - Decreased appetite [Unknown]
  - Peripheral swelling [Unknown]
  - Respiratory arrest [Fatal]
  - Terminal state [Unknown]
  - General physical health deterioration [Not Recovered/Not Resolved]
  - Malaise [Unknown]
  - Urinary retention [Unknown]

NARRATIVE: CASE EVENT DATE: 201904
